FAERS Safety Report 23931804 (Version 3)
Quarter: 2024Q2

REPORT INFORMATION
  Report Type: Spontaneous
  Country: IT (occurrence: IT)
  Receive Date: 20240603
  Receipt Date: 20240610
  Transmission Date: 20240716
  Serious: Yes (Death, Other)
  Sender: FDA-Public Use
  Company Number: None

PATIENT
  Age: 60 Year
  Sex: Male

DRUGS (2)
  1. BETAMETHASONE SODIUM PHOSPHATE [Suspect]
     Active Substance: BETAMETHASONE SODIUM PHOSPHATE
     Indication: Optic ischaemic neuropathy
     Dosage: 2 MG/0.5 ML
     Route: 056
  2. DESMOPRESSIN [Suspect]
     Active Substance: DESMOPRESSIN
     Indication: Optic ischaemic neuropathy
     Dosage: 2 MCG/0.5 ML
     Route: 056

REACTIONS (2)
  - Acute myocardial infarction [Fatal]
  - Off label use [Fatal]
